FAERS Safety Report 7804388-0 (Version None)
Quarter: 2011Q4

REPORT INFORMATION
  Report Type: 
  Country: None (occurrence: None)
  Receive Date: 20111010
  Receipt Date: 20110927
  Transmission Date: 20120403
  Serious: Yes (Other)
  Sender: FDA-Public Use
  Company Number: US-ELI_LILLY_AND_COMPANY-US201007003742

PATIENT
  Sex: Female

DRUGS (2)
  1. FORTEO [Suspect]
     Indication: OSTEOPOROSIS
     Dosage: 20 UG, QD
     Route: 058
  2. FORTEO [Suspect]
     Dosage: 20 UG, QD
     Route: 058

REACTIONS (10)
  - PAIN IN EXTREMITY [None]
  - ANXIETY [None]
  - CONTUSION [None]
  - SKELETAL INJURY [None]
  - BREAST INJURY [None]
  - FALL [None]
  - ANGER [None]
  - HIP FRACTURE [None]
  - HEAD INJURY [None]
  - ACCIDENT [None]
